FAERS Safety Report 8189169-3 (Version None)
Quarter: 2012Q1

REPORT INFORMATION
  Report Type: 
  Country: None (occurrence: None)
  Receive Date: 20120306
  Receipt Date: 20120306
  Transmission Date: 20120608
  Serious: Yes (Hospitalization, Other)
  Sender: FDA-Public Use
  Company Number: None

PATIENT
  Sex: Female
  Weight: 129.2752 kg

DRUGS (1)
  1. STELARA [Suspect]
     Indication: PSORIASIS
     Dosage: 90MG Q2-3MO. SUB Q
     Route: 058
     Dates: start: 20100301

REACTIONS (2)
  - EXTRADURAL ABSCESS [None]
  - STAPHYLOCOCCAL ABSCESS [None]
